FAERS Safety Report 24261173 (Version 6)
Quarter: 2025Q3

REPORT INFORMATION
  Report Type: Report from Study
  Country: MX (occurrence: MX)
  Receive Date: 20240829
  Receipt Date: 20250704
  Transmission Date: 20251021
  Serious: Yes (Disabling, Other)
  Sender: ROCHE
  Company Number: MX-ROCHE-10000066176

PATIENT
  Age: 34 Year
  Sex: Male
  Weight: 75 kg

DRUGS (12)
  1. ENSPRYNG [Suspect]
     Active Substance: SATRALIZUMAB-MWGE
     Indication: Neuromyelitis optica spectrum disorder
     Route: 058
     Dates: start: 202404, end: 202411
  2. ENSPRYNG [Suspect]
     Active Substance: SATRALIZUMAB-MWGE
     Route: 058
  3. ENSPRYNG [Suspect]
     Active Substance: SATRALIZUMAB-MWGE
     Dosage: SATRALIZUMAB
     Route: 058
     Dates: start: 202404
  4. OMEPRAZOLE [Concomitant]
     Active Substance: OMEPRAZOLE
     Route: 048
     Dates: start: 202409
  5. MOTILIUM [Concomitant]
     Active Substance: DOMPERIDONE
     Route: 048
     Dates: start: 202409
  6. DOMPERIDONE [Concomitant]
     Active Substance: DOMPERIDONE
     Route: 048
     Dates: start: 202409
  7. ATORVASTATIN [Concomitant]
     Active Substance: ATORVASTATIN
  8. DULOXETINE [Concomitant]
     Active Substance: DULOXETINE
  9. GABAPENTIN [Concomitant]
     Active Substance: GABAPENTIN
  10. DEFLAZACORT [Concomitant]
     Active Substance: DEFLAZACORT
     Dates: end: 202505
  11. PREDNISONE [Concomitant]
     Active Substance: PREDNISONE
  12. RAVULIZUMAB [Concomitant]
     Active Substance: RAVULIZUMAB
     Dosage: DOSE AND FREQUENCY WERE NOT REPORTED
     Route: 042
     Dates: start: 202412

REACTIONS (6)
  - Secondary syphilis [Unknown]
  - Dengue fever [Unknown]
  - Myelitis transverse [Unknown]
  - Gait inability [Unknown]
  - Optic neuritis [Unknown]
  - Serous retinal detachment [Unknown]

NARRATIVE: CASE EVENT DATE: 20240501
